FAERS Safety Report 22605260 (Version 1)
Quarter: 2023Q2

REPORT INFORMATION
  Report Type: Other
  Country: CN (occurrence: CN)
  Receive Date: 20230615
  Receipt Date: 20230615
  Transmission Date: 20230721
  Serious: Yes (Other)
  Sender: FDA-Public Use
  Company Number: CN-GE HEALTHCARE-2023CSU004626

PATIENT
  Age: 74 Year
  Sex: Male
  Weight: 65.2 kg

DRUGS (9)
  1. OMNIPAQUE [Suspect]
     Active Substance: IOHEXOL
     Indication: Arteriogram
     Dosage: 30 GM, SINGLE
     Route: 013
     Dates: start: 20230407, end: 20230407
  2. OMNIPAQUE [Suspect]
     Active Substance: IOHEXOL
     Indication: Therapeutic embolisation
  3. OMNIPAQUE [Suspect]
     Active Substance: IOHEXOL
     Indication: Hepatic cancer
  4. OXALIPLATIN [Suspect]
     Active Substance: OXALIPLATIN
     Indication: Arteriogram
     Dosage: 50 MG, QD
     Route: 013
     Dates: start: 20230407, end: 20230407
  5. OXALIPLATIN [Suspect]
     Active Substance: OXALIPLATIN
     Indication: Therapeutic embolisation
  6. OXALIPLATIN [Suspect]
     Active Substance: OXALIPLATIN
     Indication: Hepatic cancer
  7. IODINE [Suspect]
     Active Substance: IODINE
     Indication: Arteriogram
     Dosage: 10 ML, QD
     Route: 013
     Dates: start: 20230407, end: 20230407
  8. IODINE [Suspect]
     Active Substance: IODINE
     Indication: Therapeutic embolisation
  9. IODINE [Suspect]
     Active Substance: IODINE
     Indication: Hepatic cancer

REACTIONS (4)
  - Blood bilirubin increased [Recovering/Resolving]
  - Bilirubin conjugated increased [Recovering/Resolving]
  - Blood bilirubin unconjugated increased [Recovering/Resolving]
  - Renal impairment [Recovering/Resolving]

NARRATIVE: CASE EVENT DATE: 20230413
